FAERS Safety Report 16292705 (Version 1)
Quarter: 2019Q2

REPORT INFORMATION
  Report Type: Spontaneous
  Country: ES (occurrence: ES)
  Receive Date: 20190509
  Receipt Date: 20190509
  Transmission Date: 20190711
  Serious: Yes (Hospitalization)
  Sender: FDA-Public Use
  Company Number: ES-TEVA-2019-ES-1046584

PATIENT
  Age: 72 Year
  Sex: Female

DRUGS (3)
  1. OXALIPLATINO (7351A) [Suspect]
     Active Substance: OXALIPLATIN
     Indication: COLON CANCER STAGE IV
     Dosage: 130 MG, CYCLE
     Dates: start: 20180313, end: 20180410
  2. BEVACIZUMAB (2952A) [Suspect]
     Active Substance: BEVACIZUMAB
     Indication: COLON CANCER STAGE IV
     Dosage: 315 MG, CYCLE
     Dates: start: 20180327, end: 20180410
  3. 5 FLUORURACILO [Suspect]
     Active Substance: FLUOROURACIL
     Indication: COLON CANCER STAGE IV
     Dosage: 628 MG, CYCLE
     Dates: start: 20180313, end: 20180410

REACTIONS (4)
  - Hypomagnesaemia [Recovering/Resolving]
  - Hypophosphataemia [Recovering/Resolving]
  - Diarrhoea [Recovered/Resolved]
  - Hypokalaemia [Recovering/Resolving]

NARRATIVE: CASE EVENT DATE: 20180415
